FAERS Safety Report 14733233 (Version 1)
Quarter: 2018Q2

REPORT INFORMATION
  Report Type: Spontaneous
  Country: JP (occurrence: JP)
  Receive Date: 20180409
  Receipt Date: 20180409
  Transmission Date: 20180711
  Serious: Yes (Other)
  Sender: FDA-Public Use
  Company Number: PHJP2018JP002848

PATIENT
  Age: 72 Year
  Sex: Female
  Weight: 51 kg

DRUGS (10)
  1. REVOLADE TAB [Interacting]
     Active Substance: ELTROMBOPAG
     Dosage: 75 MG, QD
     Route: 048
     Dates: start: 20180203
  2. ZOLPIDEM [Concomitant]
     Active Substance: ZOLPIDEM\ZOLPIDEM TARTRATE
     Indication: PRODUCT USED FOR UNKNOWN INDICATION
     Dosage: 5 MG, QD
     Route: 048
     Dates: start: 20150128
  3. REVOLADE TAB [Interacting]
     Active Substance: ELTROMBOPAG
     Indication: APLASTIC ANAEMIA
     Dosage: 25 MG, QD
     Route: 048
     Dates: start: 20171016, end: 20171029
  4. NEORAL [Suspect]
     Active Substance: CYCLOSPORINE
     Indication: APLASTIC ANAEMIA
     Dosage: 50 MG, BID
     Route: 048
     Dates: start: 201009
  5. REVOLADE TAB [Interacting]
     Active Substance: ELTROMBOPAG
     Dosage: 50 MG, QD
     Route: 048
     Dates: start: 20171030, end: 20171112
  6. REVOLADE TAB [Interacting]
     Active Substance: ELTROMBOPAG
     Dosage: 100 MG, QD
     Route: 048
     Dates: start: 20171127, end: 20180202
  7. REVOLADE TAB [Interacting]
     Active Substance: ELTROMBOPAG
     Dosage: 75 MG, QD
     Route: 048
     Dates: start: 20171113, end: 20171126
  8. FEBURIC [Concomitant]
     Active Substance: FEBUXOSTAT
     Indication: PRODUCT USED FOR UNKNOWN INDICATION
     Dosage: 10 MG, QD
     Route: 048
     Dates: start: 20150128
  9. ATELEC [Concomitant]
     Active Substance: CILNIDIPINE
     Indication: PRODUCT USED FOR UNKNOWN INDICATION
     Dosage: 5 MG, QD
     Route: 048
     Dates: start: 20150128
  10. TENELIA [Concomitant]
     Active Substance: TENELIGLIPTIN
     Indication: PRODUCT USED FOR UNKNOWN INDICATION
     Dosage: 20 MG, QD
     Route: 048
     Dates: start: 20160413

REACTIONS (10)
  - Dyspnoea [Recovered/Resolved]
  - Erythroblast count increased [Recovered/Resolved]
  - Myelocyte count increased [Recovered/Resolved]
  - Skin discolouration [Not Recovered/Not Resolved]
  - Aplastic anaemia [Unknown]
  - Disease progression [Unknown]
  - Conjunctival discolouration [Not Recovered/Not Resolved]
  - Metamyelocyte count increased [Recovered/Resolved]
  - Decreased appetite [Recovered/Resolved]
  - Serum colour abnormal [Recovering/Resolving]

NARRATIVE: CASE EVENT DATE: 201801
